FAERS Safety Report 9722749 (Version 1)
Quarter: 2013Q4

REPORT INFORMATION
  Report Type: Spontaneous
  Country: DE (occurrence: DE)
  Receive Date: 20131202
  Receipt Date: 20131202
  Transmission Date: 20140711
  Serious: Yes (Death)
  Sender: FDA-Public Use
  Company Number: DE-B.I. PHARMACEUTICALS,INC./RIDGEFIELD-2013-BI-39797DE

PATIENT
  Age: 87 Year
  Sex: Female

DRUGS (1)
  1. PRADAXA [Suspect]
     Indication: ATRIAL FIBRILLATION
     Dosage: 1.0476 MG
     Route: 048
     Dates: start: 20130313, end: 20131111

REACTIONS (5)
  - Shock haemorrhagic [Fatal]
  - Sepsis [Fatal]
  - Colitis ischaemic [Fatal]
  - Bacterial translocation [Fatal]
  - Systemic inflammatory response syndrome [Fatal]
